FAERS Safety Report 5157122-X (Version None)
Quarter: 2006Q4

REPORT INFORMATION
  Report Type: 
  Country: None (occurrence: None)
  Receive Date: 20061127
  Receipt Date: 20061116
  Transmission Date: 20070319
  Serious: Yes (Other)
  Sender: FDA-Public Use
  Company Number: PHEH2006US14380

PATIENT

DRUGS (1)
  1. FEMARA [Suspect]

REACTIONS (1)
  - PULMONARY HYPERTENSION [None]
